FAERS Safety Report 9114141 (Version 2)
Quarter: 2013Q2

REPORT INFORMATION
  Report Type: Spontaneous
  Country: US (occurrence: US)
  Receive Date: 20130129
  Receipt Date: 20130402
  Transmission Date: 20140414
  Serious: No
  Sender: FDA-Public Use
  Company Number: US-PFIZER INC-2013032648

PATIENT
  Age: 49 Year
  Sex: Female
  Weight: 60.32 kg

DRUGS (16)
  1. EFFEXOR XR [Suspect]
     Indication: DEPRESSION
     Dosage: 100 MG, 1X/DAY
     Route: 048
     Dates: start: 2012
  2. EFFEXOR XR [Suspect]
     Dosage: 75 MG, DAILY
     Dates: start: 20130104, end: 2013
  3. EFFEXOR XR [Suspect]
     Dosage: 100 MG, 1X/DAY
     Dates: start: 2013
  4. EFFEXOR [Suspect]
     Indication: DEPRESSION
     Dosage: 75 MG, 1X/DAY
     Dates: start: 1992
  5. LORTAB [Concomitant]
     Dosage: UNK, ^10MG^ AS NEEDED
  6. XANAX [Concomitant]
     Indication: DEPRESSION
     Dosage: 10 MG, UNK
  7. XANAX [Concomitant]
     Indication: ANXIETY
  8. NEXIUM [Concomitant]
     Indication: GASTROOESOPHAGEAL REFLUX DISEASE
     Dosage: 40 MG, 1X/DAY
  9. NEURONTIN [Concomitant]
     Indication: PELVIC PAIN
     Dosage: 600 MG, UNK
  10. NEURONTIN [Concomitant]
     Indication: TEMPOROMANDIBULAR JOINT SYNDROME
  11. PHENERGAN [Concomitant]
     Indication: NAUSEA
     Dosage: 25 MG, UNK
  12. FLEXERIL [Concomitant]
     Indication: PELVIC PAIN
     Dosage: 10 MG, AS NEEDED
  13. FLEXERIL [Concomitant]
     Indication: NECK PAIN
  14. SUDAFED [Concomitant]
     Indication: SINUS DISORDER
     Dosage: UNK
  15. TRAZODONE [Concomitant]
     Indication: DEPRESSION
     Dosage: 100 MG, UNK
  16. HALCION [Concomitant]
     Indication: SLEEP DISORDER
     Dosage: UNK

REACTIONS (5)
  - Sinus headache [Not Recovered/Not Resolved]
  - Insomnia [Unknown]
  - Sinusitis [Not Recovered/Not Resolved]
  - Drug ineffective [Unknown]
  - Drug withdrawal syndrome [Unknown]
